FAERS Safety Report 9905381 (Version 1)
Quarter: 2014Q1

REPORT INFORMATION
  Report Type: Spontaneous
  Country: FR (occurrence: FR)
  Receive Date: 20140218
  Receipt Date: 20140218
  Transmission Date: 20141002
  Serious: Yes (Life-Threatening, Hospitalization, Other)
  Sender: FDA-Public Use
  Company Number: FR-PFIZER INC-2014042424

PATIENT
  Age: 38 Year
  Sex: Male

DRUGS (7)
  1. XANAX [Suspect]
     Dosage: 0.5 MG, DAILY
     Route: 048
  2. XANAX [Suspect]
     Dosage: UNK
     Route: 048
     Dates: start: 20131008, end: 20131008
  3. BACLOFEN [Suspect]
     Dosage: 6 DF, DAILY
     Route: 048
     Dates: start: 201309, end: 201310
  4. BACLOFEN [Suspect]
     Dosage: UNK
     Route: 048
     Dates: start: 20131008, end: 20131008
  5. SEROPLEX [Concomitant]
     Dosage: 15 MG, DAILY
  6. ZOPICLONE [Concomitant]
     Dosage: UNK
  7. ESOMEPRAZOLE [Concomitant]
     Dosage: UNK

REACTIONS (2)
  - Coma [Recovered/Resolved]
  - Drug abuse [Unknown]
